FAERS Safety Report 20851681 (Version 3)
Quarter: 2022Q2

REPORT INFORMATION
  Report Type: Spontaneous
  Country: JP (occurrence: JP)
  Receive Date: 20220520
  Receipt Date: 20220609
  Transmission Date: 20220721
  Serious: Yes (Disabling, Other)
  Sender: FDA-Public Use
  Company Number: JP-NBI-S202200076BIPI

PATIENT
  Age: 82 Year
  Sex: Female
  Weight: 40.5 kg

DRUGS (4)
  1. JARDIANCE [Suspect]
     Active Substance: EMPAGLIFLOZIN
     Indication: Type 1 diabetes mellitus
     Route: 048
  2. JARDIANCE [Suspect]
     Active Substance: EMPAGLIFLOZIN
     Route: 048
  3. INSULIN GLULISINE(GENETICAL RECOMBINATION) [Concomitant]
     Indication: Type 1 diabetes mellitus
     Route: 065
  4. INSULIN GLARGINE [Concomitant]
     Active Substance: INSULIN GLARGINE
     Indication: Type 1 diabetes mellitus
     Route: 065

REACTIONS (4)
  - Cerebral infarction [Recovered/Resolved with Sequelae]
  - Neurogenic bladder [Unknown]
  - Pneumaturia [Unknown]
  - Off label use [Unknown]
